FAERS Safety Report 8214808-8 (Version None)
Quarter: 2012Q1

REPORT INFORMATION
  Report Type: 
  Country: None (occurrence: None)
  Receive Date: 20120316
  Receipt Date: 20120306
  Transmission Date: 20120608
  Serious: Yes (Other)
  Sender: FDA-Public Use
  Company Number: US-JNJFOC-20120303368

PATIENT
  Sex: Female
  Weight: 108.86 kg

DRUGS (6)
  1. TRI-CHLOR [Concomitant]
     Indication: BLOOD CHOLESTEROL INCREASED
     Route: 048
  2. EXFORGE [Concomitant]
     Indication: HYPERTENSION
     Dosage: DOSE:5/160MG
     Route: 048
  3. INSULIN [Concomitant]
     Indication: DIABETES MELLITUS
     Route: 058
  4. REMICADE [Suspect]
     Indication: PSORIATIC ARTHROPATHY
     Route: 042
     Dates: start: 20110101
  5. CRESTOR [Concomitant]
     Indication: BLOOD CHOLESTEROL INCREASED
     Route: 048
  6. DIOVAN [Concomitant]
     Indication: HYPERTENSION
     Dosage: 320/25MG
     Route: 048

REACTIONS (4)
  - SCIATICA [None]
  - PSORIASIS [None]
  - INTERVERTEBRAL DISC PROTRUSION [None]
  - FALL [None]
